FAERS Safety Report 25266284 (Version 2)
Quarter: 2025Q3

REPORT INFORMATION
  Report Type: Report from Study
  Country: US (occurrence: US)
  Receive Date: 20250504
  Receipt Date: 20250923
  Transmission Date: 20251021
  Serious: No
  Sender: SANDOZ
  Company Number: US-SANDOZ-SDZ2025US027007

PATIENT
  Age: 14 Year
  Sex: Male

DRUGS (2)
  1. OMNITROPE [Suspect]
     Active Substance: SOMATROPIN
     Indication: Product used for unknown indication
     Dosage: 2.8 MG, QD(STRENGTH 10 MG / 1.5 ML )
     Route: 058
     Dates: start: 20250424
  2. OMNITROPE [Suspect]
     Active Substance: SOMATROPIN
     Indication: Product used for unknown indication
     Dosage: 2.8 MG, QD(STRENGTH 10 MG / 1.5 ML )
     Route: 058
     Dates: start: 20250424

REACTIONS (5)
  - Incorrect dose administered by device [Unknown]
  - Device difficult to use [Unknown]
  - Device physical property issue [Unknown]
  - Device leakage [Unknown]
  - Device issue [Unknown]

NARRATIVE: CASE EVENT DATE: 20250425
